FAERS Safety Report 7318814-7 (Version None)
Quarter: 2011Q1

REPORT INFORMATION
  Report Type: 
  Country: None (occurrence: None)
  Receive Date: 20110228
  Receipt Date: 20100824
  Transmission Date: 20110831
  Serious: No
  Sender: FDA-Public Use
  Company Number: A0871690A

PATIENT
  Age: 31 Year
  Sex: Female

DRUGS (3)
  1. ESTROGEN PATCH [Concomitant]
  2. TRAMADOL [Concomitant]
  3. IMITREX [Suspect]
     Indication: MIGRAINE
     Dosage: 6MG SINGLE DOSE
     Route: 042
     Dates: start: 20100721, end: 20100721

REACTIONS (1)
  - INCORRECT ROUTE OF DRUG ADMINISTRATION [None]
